FAERS Safety Report 4711123-1 (Version None)
Quarter: 2005Q3

REPORT INFORMATION
  Report Type: 
  Country: None (occurrence: None)
  Receive Date: 20050708
  Receipt Date: 20050624
  Transmission Date: 20060218
  Serious: Yes (Other)
  Sender: FDA-Public Use
  Company Number: 2005-DE-02428GD

PATIENT
  Sex: Female

DRUGS (1)
  1. MIDAZOLAM HCL [Suspect]
     Dosage: NR (NR) IV
     Route: 042

REACTIONS (2)
  - ANAESTHETIC COMPLICATION [None]
  - ANAPHYLACTIC REACTION [None]
